FAERS Safety Report 8362993-X (Version None)
Quarter: 2012Q2

REPORT INFORMATION
  Report Type: 
  Country: None (occurrence: None)
  Receive Date: 20120516
  Receipt Date: 20110928
  Transmission Date: 20120825
  Serious: No
  Sender: FDA-Public Use
  Company Number: US-ALEXION-A201101470

PATIENT
  Sex: Female
  Weight: 46.8 kg

DRUGS (8)
  1. ZOLOFT [Concomitant]
     Dosage: 50 MG Q HRS
     Route: 048
  2. VORICONAZOLE [Concomitant]
     Dosage: 200 MG BID
     Route: 048
  3. PENTAMIDINE [Concomitant]
     Dosage: UNK Q MONTH
     Route: 045
  4. ACYCLOVIR [Concomitant]
     Dosage: 20 MG TID
  5. CYCLOSPORINE [Concomitant]
     Dosage: 50 MG, QD
  6. SOLIRIS [Suspect]
     Indication: PAROXYSMAL NOCTURNAL HAEMOGLOBINURIA
     Dosage: 600 MG UNK
     Route: 042
     Dates: start: 20110922
  7. CYCLOSPORINE [Concomitant]
     Dosage: 75 MG IN PM
  8. FOLIC ACID [Concomitant]
     Dosage: 1 MG QD
     Route: 048

REACTIONS (3)
  - MENSTRUATION IRREGULAR [None]
  - VOMITING [None]
  - HEADACHE [None]
